FAERS Safety Report 16596432 (Version 2)
Quarter: 2019Q3

REPORT INFORMATION
  Report Type: Spontaneous
  Country: US (occurrence: US)
  Receive Date: 20190719
  Receipt Date: 20190809
  Transmission Date: 20191004
  Serious: No
  Sender: FDA-Public Use
  Company Number: US-ASTRAZENECA-2019SE91858

PATIENT
  Sex: Female
  Weight: 78.5 kg

DRUGS (1)
  1. BYDUREON BCISE [Suspect]
     Active Substance: EXENATIDE
     Indication: TYPE 2 DIABETES MELLITUS
     Route: 058
     Dates: start: 2018

REACTIONS (11)
  - Fall [Recovering/Resolving]
  - Weight decreased [Unknown]
  - Hypersensitivity [Recovered/Resolved]
  - Device leakage [Unknown]
  - Wheezing [Recovered/Resolved]
  - Device issue [Unknown]
  - Injection site pain [Unknown]
  - Incorrect dose administered by device [Unknown]
  - Needle issue [Unknown]
  - Weight increased [Unknown]
  - Product dose omission [Unknown]
